FAERS Safety Report 15335366 (Version 1)
Quarter: 2018Q3

REPORT INFORMATION
  Report Type: Spontaneous
  Country: SE (occurrence: SE)
  Receive Date: 20180830
  Receipt Date: 20180830
  Transmission Date: 20181010
  Serious: Yes (Other)
  Sender: FDA-Public Use
  Company Number: PHHY2018SE085907

PATIENT
  Age: 55 Year
  Sex: Male

DRUGS (3)
  1. AMOXICILLIN. [Suspect]
     Active Substance: AMOXICILLIN
     Indication: BRAIN ABSCESS
  2. AMOXICILLIN. [Suspect]
     Active Substance: AMOXICILLIN
     Indication: MENINGITIS BACTERIAL
  3. AMOXICILLIN. [Suspect]
     Active Substance: AMOXICILLIN
     Indication: EMPYEMA
     Dosage: UNK
     Route: 065

REACTIONS (1)
  - Tooth deposit [Unknown]

NARRATIVE: CASE EVENT DATE: 2018
